FAERS Safety Report 7772720-2 (Version None)
Quarter: 2011Q3

REPORT INFORMATION
  Report Type: 
  Country: None (occurrence: None)
  Receive Date: 20110922
  Receipt Date: 20101104
  Transmission Date: 20111222
  Serious: No
  Sender: FDA-Public Use
  Company Number: US-ASTRAZENECA-2010SE52629

PATIENT
  Age: 59 Year
  Sex: Female

DRUGS (6)
  1. CYMBALTA [Concomitant]
  2. COGENTIN [Concomitant]
  3. SEROQUEL [Suspect]
     Indication: MAJOR DEPRESSION
     Route: 048
     Dates: start: 20090101
  4. SEROQUEL [Suspect]
     Route: 048
     Dates: start: 20090101
  5. SEROQUEL [Suspect]
     Route: 048
     Dates: start: 20090101
  6. SEROQUEL [Suspect]
     Indication: DYSTHYMIC DISORDER
     Route: 048
     Dates: start: 20090101

REACTIONS (1)
  - HAEMATURIA [None]
